FAERS Safety Report 8189535-6 (Version None)
Quarter: 2012Q1

REPORT INFORMATION
  Report Type: 
  Country: None (occurrence: None)
  Receive Date: 20120302
  Receipt Date: 20120220
  Transmission Date: 20120608
  Serious: Yes (Hospitalization)
  Sender: FDA-Public Use
  Company Number: 2012SP009625

PATIENT
  Age: 58 Year
  Sex: Female

DRUGS (5)
  1. ETIZOLAM (ETIZOLAM) [Suspect]
     Indication: PRODUCT USED FOR UNKNOWN INDICATION
     Dosage: 0.5 MG;UNK;PO
     Route: 048
     Dates: start: 20111101, end: 20120126
  2. FLUNITRAZEPAM (FLUNITRAZEPAM) [Suspect]
     Indication: PRODUCT USED FOR UNKNOWN INDICATION
     Dosage: 2 MG;UNK;PO
     Route: 048
     Dates: start: 20111101, end: 20120126
  3. ETHYL LOFLAZEPATE (ETHYL LOFLAZEPATE) [Suspect]
     Indication: PRODUCT USED FOR UNKNOWN INDICATION
     Dosage: 1 MG;QD;PO
     Route: 048
     Dates: start: 20111101, end: 20120126
  4. MIRTAZAPINE [Suspect]
     Indication: DEPRESSION
     Dosage: 15 MG;ONCE;PO, 7.5 MG;ONCE;PO
     Route: 048
     Dates: start: 20120125, end: 20120125
  5. MIRTAZAPINE [Suspect]
     Indication: DEPRESSION
     Dosage: 15 MG;ONCE;PO, 7.5 MG;ONCE;PO
     Route: 048
     Dates: start: 20120126, end: 20120126

REACTIONS (4)
  - DIZZINESS [None]
  - SCHIZOPHRENIA [None]
  - DELUSION [None]
  - SOMNOLENCE [None]
